FAERS Safety Report 9198739 (Version 3)
Quarter: 2013Q2

REPORT INFORMATION
  Report Type: Spontaneous
  Country: ES (occurrence: ES)
  Receive Date: 20130329
  Receipt Date: 20130415
  Transmission Date: 20140414
  Serious: Yes (Other)
  Sender: FDA-Public Use
  Company Number: ES-PFIZER INC-2013098476

PATIENT
  Age: 63 Year
  Sex: Female

DRUGS (5)
  1. LYRICA [Suspect]
     Dosage: 75 MG, 1X/DAY
  2. LYRICA [Suspect]
     Dosage: 75 MG, 2X/DAY
  3. LIPEMOL [Concomitant]
  4. LEXATIN [Concomitant]
  5. FORTASEC [Concomitant]

REACTIONS (6)
  - Cerebellar tumour [Not Recovered/Not Resolved]
  - Drug ineffective [Recovered/Resolved]
  - Vomiting [Recovered/Resolved]
  - Fatigue [Recovered/Resolved]
  - Pallor [Recovered/Resolved]
  - Constipation [Recovered/Resolved]
